FAERS Safety Report 14656739 (Version 1)
Quarter: 2018Q1

REPORT INFORMATION
  Report Type: Spontaneous
  Country: US (occurrence: US)
  Receive Date: 20180319
  Receipt Date: 20180319
  Transmission Date: 20180509
  Serious: No
  Sender: FDA-Public Use
  Company Number: US-SA-2017SA042597

PATIENT
  Sex: Male

DRUGS (1)
  1. NASACORT ALLERGY 24HR [Suspect]
     Active Substance: TRIAMCINOLONE ACETONIDE
     Dosage: NASAL SPRAY
     Route: 055
     Dates: start: 20170220, end: 20170223

REACTIONS (6)
  - Arthralgia [Unknown]
  - Drug ineffective [Unknown]
  - Paranasal sinus hypersecretion [Unknown]
  - Lacrimation increased [Unknown]
  - Sneezing [Unknown]
  - Spinal pain [Unknown]
